FAERS Safety Report 9266860 (Version 1)
Quarter: 2013Q2

REPORT INFORMATION
  Report Type: Spontaneous
  Country: US (occurrence: US)
  Receive Date: 20130502
  Receipt Date: 20130502
  Transmission Date: 20140414
  Serious: No
  Sender: FDA-Public Use
  Company Number: US-B.I. PHARMACEUTICALS,INC./RIDGEFIELD-2013-BI-10904BP

PATIENT
  Age: 74 Year
  Sex: Male
  Weight: 106 kg

DRUGS (12)
  1. TRADJENTA [Suspect]
     Indication: TYPE 2 DIABETES MELLITUS
     Dosage: 5 MG
     Route: 048
     Dates: start: 201301, end: 201303
  2. METFORMIN [Concomitant]
     Indication: DIABETES MELLITUS
     Dosage: 2000 MG
     Route: 048
  3. GLYBURIDE [Concomitant]
     Dosage: 20 MG
  4. OMEPRAZOLE [Concomitant]
     Indication: GASTROOESOPHAGEAL REFLUX DISEASE
     Dosage: 40 MG
  5. VOLTAREN GEL [Concomitant]
     Indication: MUSCULOSKELETAL PAIN
  6. LOW DOSE ASPIRIN [Concomitant]
     Indication: PROPHYLAXIS
     Dosage: 81 MG
  7. ATORVASTATIN [Concomitant]
     Indication: HYPERLIPIDAEMIA
     Dosage: 10 MG
     Route: 048
  8. FLONASE [Concomitant]
     Indication: SEASONAL ALLERGY
     Route: 045
  9. HYDROCHLORTHIAZIDE [Concomitant]
     Indication: HYPERTENSION
     Dosage: 25 MG
     Route: 048
  10. METOPROLOL [Concomitant]
     Indication: HYPERTENSION
     Dosage: 50 MG
     Route: 048
  11. SINGULAIR [Concomitant]
     Indication: HYPERSENSITIVITY
  12. BENAZEPRIL [Concomitant]
     Indication: HYPERTENSION
     Dosage: 40 MG
     Route: 048

REACTIONS (2)
  - Rash [Recovered/Resolved]
  - Wheezing [Recovered/Resolved]
